FAERS Safety Report 12954320 (Version 1)
Quarter: 2016Q4

REPORT INFORMATION
  Report Type: Report from Study
  Country: US (occurrence: US)
  Receive Date: 20161118
  Receipt Date: 20161118
  Transmission Date: 20170207
  Serious: Yes (Other)
  Sender: FDA-Public Use
  Company Number: US-ROCHE-1854843

PATIENT

DRUGS (1)
  1. PEG-INTERFERON ALFA 2A [Suspect]
     Active Substance: PEGINTERFERON ALFA-2A
     Indication: RENAL CELL CARCINOMA
     Route: 058

REACTIONS (12)
  - Haematotoxicity [Unknown]
  - Fatigue [Unknown]
  - Immune thrombocytopenic purpura [Unknown]
  - Neutropenia [Unknown]
  - Atrial fibrillation [Unknown]
  - Hepatotoxicity [Unknown]
  - Leukopenia [Unknown]
  - Platelet toxicity [Unknown]
  - Alanine aminotransferase increased [Unknown]
  - Rash [Unknown]
  - Headache [Unknown]
  - Anxiety [Unknown]
